FAERS Safety Report 22344531 (Version 1)
Quarter: 2023Q2

REPORT INFORMATION
  Report Type: Spontaneous
  Country: US (occurrence: US)
  Receive Date: 20230519
  Receipt Date: 20230519
  Transmission Date: 20230721
  Serious: No
  Sender: FDA-Public Use
  Company Number: US-BIOVITRUM-2023-US-010944

PATIENT
  Age: 53 Year
  Sex: Female

DRUGS (1)
  1. KINERET [Suspect]
     Active Substance: ANAKINRA
     Indication: Still^s disease
     Dosage: ONCE DAILY
     Route: 058
     Dates: start: 20230425

REACTIONS (6)
  - Injection site mass [Not Recovered/Not Resolved]
  - Intentional product misuse [Unknown]
  - Feeling hot [Not Recovered/Not Resolved]
  - Injection site pruritus [Not Recovered/Not Resolved]
  - Injection site pain [Not Recovered/Not Resolved]
  - Injection site paraesthesia [Not Recovered/Not Resolved]

NARRATIVE: CASE EVENT DATE: 20230425
